FAERS Safety Report 7902616-4 (Version None)
Quarter: 2011Q4

REPORT INFORMATION
  Report Type: 
  Country: None (occurrence: None)
  Receive Date: 20111108
  Receipt Date: 20111101
  Transmission Date: 20120403
  Serious: Yes (Hospitalization)
  Sender: FDA-Public Use
  Company Number: JP-ABBOTT-11P-087-0870953-00

PATIENT
  Sex: Female

DRUGS (3)
  1. HUMIRA [Suspect]
     Indication: CROHN'S DISEASE
     Route: 058
     Dates: start: 20110223, end: 20110223
  2. HUMIRA [Suspect]
  3. HUMIRA [Suspect]
     Dates: end: 20111001

REACTIONS (2)
  - SMALL INTESTINAL PERFORATION [None]
  - SMALL INTESTINAL STENOSIS [None]
